FAERS Safety Report 10900857 (Version 2)
Quarter: 2015Q3

REPORT INFORMATION
  Report Type: Spontaneous
  Country: US (occurrence: US)
  Receive Date: 20150310
  Receipt Date: 20150908
  Transmission Date: 20151125
  Serious: Yes (Hospitalization)
  Sender: FDA-Public Use
  Company Number: US-PFIZER INC-2015080778

PATIENT
  Age: 59 Year
  Sex: Female
  Weight: 75 kg

DRUGS (5)
  1. XANAX [Concomitant]
     Active Substance: ALPRAZOLAM
     Indication: PANIC ATTACK
     Dosage: UNK
     Dates: start: 2015
  2. XANAX [Concomitant]
     Active Substance: ALPRAZOLAM
     Indication: AGORAPHOBIA
  3. NARDIL [Suspect]
     Active Substance: PHENELZINE SULFATE
     Indication: PANIC DISORDER
     Dosage: 15 MG, 3X/DAY
     Dates: start: 2015
  4. NARDIL [Suspect]
     Active Substance: PHENELZINE SULFATE
     Indication: DEPRESSION
     Dosage: 1 DF, 2X/DAY
     Dates: end: 20150106
  5. NARDIL [Suspect]
     Active Substance: PHENELZINE SULFATE
     Dosage: 1 DF, 1X/DAY
     Dates: start: 20150107, end: 20150109

REACTIONS (3)
  - Anaemia [Unknown]
  - Micturition urgency [Unknown]
  - Headache [Unknown]

NARRATIVE: CASE EVENT DATE: 201501
